FAERS Safety Report 7939744-3 (Version None)
Quarter: 2011Q4

REPORT INFORMATION
  Report Type: 
  Country: None (occurrence: None)
  Receive Date: 20111125
  Receipt Date: 20111118
  Transmission Date: 20120403
  Serious: Yes (Hospitalization, Other)
  Sender: FDA-Public Use
  Company Number: PHHY2011CA84534

PATIENT
  Age: 74 Year
  Sex: Female
  Weight: 65 kg

DRUGS (11)
  1. MIRAPEX [Concomitant]
  2. ACETAMINOPHEN [Concomitant]
     Dosage: 1 G, QID
     Route: 048
     Dates: end: 20110923
  3. COMTAN [Suspect]
     Indication: PARKINSON'S DISEASE
     Dosage: 200 MG, QID
     Route: 048
     Dates: start: 20110909, end: 20110923
  4. ACETAMINOPHEN [Concomitant]
     Dosage: UNK
  5. CALCIUM [Concomitant]
  6. EFFEXOR [Concomitant]
  7. SINEMET [Concomitant]
  8. ACETAMINOPHEN [Concomitant]
     Dosage: 1 G, UNK
  9. VITAMIN D [Concomitant]
  10. SYNTHROID [Concomitant]
  11. PREDNISONE TAB [Concomitant]
     Dosage: 40 MG, UNK

REACTIONS (9)
  - BLOOD ALKALINE PHOSPHATASE INCREASED [None]
  - CROHN'S DISEASE [None]
  - HALLUCINATION [None]
  - GAMMA-GLUTAMYLTRANSFERASE INCREASED [None]
  - AUTONOMIC NERVOUS SYSTEM IMBALANCE [None]
  - DELIRIUM [None]
  - HYPOTENSION [None]
  - COGNITIVE DISORDER [None]
  - ASPARTATE AMINOTRANSFERASE INCREASED [None]
